FAERS Safety Report 7212814-3 (Version None)
Quarter: 2011Q1

REPORT INFORMATION
  Report Type: 
  Country: None (occurrence: None)
  Receive Date: 20110106
  Receipt Date: 20101230
  Transmission Date: 20110831
  Serious: Yes (Other)
  Sender: FDA-Public Use
  Company Number: ES-ROCHE-751373

PATIENT
  Sex: Female

DRUGS (3)
  1. PEGASYS [Suspect]
     Route: 065
  2. INTERFERON ALFA-2A [Suspect]
     Route: 065
  3. RIBAVARIN [Concomitant]

REACTIONS (1)
  - EPILEPSY [None]
